FAERS Safety Report 9540469 (Version 3)
Quarter: 2013Q4

REPORT INFORMATION
  Report Type: Report from Study
  Country: US (occurrence: US)
  Receive Date: 20130920
  Receipt Date: 20131118
  Transmission Date: 20140711
  Serious: Yes (Hospitalization, Other)
  Sender: FDA-Public Use
  Company Number: PHHO2013US012010

PATIENT
  Age: 58 Year
  Sex: Male
  Weight: 122.5 kg

DRUGS (5)
  1. METOPROLOL [Suspect]
     Dosage: 50 MG, BID
     Route: 048
     Dates: start: 20020102, end: 20130912
  2. METOPROLOL [Suspect]
     Dosage: 25 MG, BID
     Route: 048
     Dates: start: 20130912
  3. BLINDED ACZ885 [Suspect]
     Indication: CARDIOVASCULAR EVENT PROPHYLAXIS
     Dosage: NO TREATMENT RECEIVED
     Route: 058
  4. BLINDED NO TREATMENT RECEIVED [Suspect]
     Indication: CARDIOVASCULAR EVENT PROPHYLAXIS
     Dosage: NO TREATMENT RECEIVED
     Route: 058
  5. BLINDED PLACEBO [Suspect]
     Indication: CARDIOVASCULAR EVENT PROPHYLAXIS
     Dosage: NO TREATMENT RECEIVED
     Route: 058

REACTIONS (3)
  - Drug intolerance [Recovered/Resolved]
  - Fatigue [Recovered/Resolved]
  - Asthenia [Recovered/Resolved]
